FAERS Safety Report 11731679 (Version 1)
Quarter: 2015Q4

REPORT INFORMATION
  Report Type: Spontaneous
  Country: US (occurrence: US)
  Receive Date: 20151110
  Receipt Date: 20151110
  Transmission Date: 20160304
  Serious: No
  Sender: FDA-Public Use
  Company Number: US-ELI_LILLY_AND_COMPANY-US201203006929

PATIENT
  Sex: Female

DRUGS (1)
  1. FORTEO [Suspect]
     Active Substance: TERIPARATIDE
     Indication: OSTEOPOROSIS
     Dosage: UNK, QD
     Dates: end: 20120320

REACTIONS (11)
  - Fatigue [Unknown]
  - Rash [Unknown]
  - Muscle spasms [Unknown]
  - Hyperhidrosis [Recovering/Resolving]
  - Muscle spasms [Recovered/Resolved]
  - Feeling abnormal [Unknown]
  - Cough [Unknown]
  - Insomnia [Recovered/Resolved]
  - Intentional product misuse [Unknown]
  - Bronchitis [Recovering/Resolving]
  - Sleep disorder [Unknown]
